FAERS Safety Report 15831670 (Version 1)
Quarter: 2019Q1

REPORT INFORMATION
  Report Type: Report from Study
  Country: US (occurrence: US)
  Receive Date: 20190116
  Receipt Date: 20190116
  Transmission Date: 20190417
  Serious: Yes (Death, Hospitalization)
  Sender: FDA-Public Use
  Company Number: US-ROCHE-2239614

PATIENT
  Age: 45 Year
  Sex: Female

DRUGS (39)
  1. MAGNESIUM SULFATE. [Concomitant]
     Active Substance: MAGNESIUM SULFATE
     Route: 042
     Dates: start: 20151125
  2. KETOROLAC [Concomitant]
     Active Substance: KETOROLAC\KETOROLAC TROMETHAMINE
     Route: 065
     Dates: start: 20151125
  3. VANCOMYCIN [Concomitant]
     Active Substance: VANCOMYCIN
     Route: 042
     Dates: start: 20151126, end: 20151127
  4. VANCOMYCIN [Concomitant]
     Active Substance: VANCOMYCIN
     Route: 042
     Dates: start: 20151128, end: 20151229
  5. LASIX [Concomitant]
     Active Substance: FUROSEMIDE
     Route: 042
     Dates: start: 20151127
  6. DILTIAZEM. [Concomitant]
     Active Substance: DILTIAZEM
     Route: 042
     Dates: start: 20151129
  7. HEPARIN [Concomitant]
     Active Substance: HEPARIN SODIUM
     Dosage: 01/DEC/2015
     Route: 065
     Dates: start: 20151127, end: 20151201
  8. FENTANYL. [Concomitant]
     Active Substance: FENTANYL
     Route: 062
     Dates: start: 20151126, end: 20151128
  9. ACETAMINOPHEN X-STRENGTH [Concomitant]
     Route: 048
     Dates: start: 20151126
  10. SOLU-CORTEF [Concomitant]
     Active Substance: HYDROCORTISONE SODIUM SUCCINATE
     Route: 042
     Dates: start: 20151127
  11. MIRALAX [Concomitant]
     Active Substance: POLYETHYLENE GLYCOL 3350
     Route: 048
     Dates: start: 20151128
  12. POTASSIUM CHLORIDE. [Concomitant]
     Active Substance: POTASSIUM CHLORIDE
     Route: 042
     Dates: start: 20151125, end: 20151126
  13. ONDANSETRON [Concomitant]
     Active Substance: ONDANSETRON
     Route: 042
     Dates: start: 20151125, end: 20151126
  14. OXYGEN. [Concomitant]
     Active Substance: OXYGEN
     Dosage: 5 LPM CONTINUOUS
     Route: 055
     Dates: start: 20151127, end: 20151130
  15. OXYGEN. [Concomitant]
     Active Substance: OXYGEN
     Dosage: 2 LPM CONTINUOUS
     Route: 055
     Dates: start: 20151130, end: 20151201
  16. ATEZOLIZUMAB. [Suspect]
     Active Substance: ATEZOLIZUMAB
     Indication: SYNOVIAL SARCOMA
     Route: 042
     Dates: start: 20151110, end: 20170113
  17. CMB305 [Suspect]
     Active Substance: INVESTIGATIONAL PRODUCT
     Indication: SYNOVIAL SARCOMA
     Dosage: 1 X10^10 VG, LV305
     Route: 023
     Dates: start: 20151110, end: 20160210
  18. ONDANSETRON [Concomitant]
     Active Substance: ONDANSETRON
     Route: 042
     Dates: start: 20151126, end: 20151128
  19. ERTAPENEM. [Concomitant]
     Active Substance: ERTAPENEM SODIUM
     Route: 042
     Dates: start: 20151126
  20. DOCUSATE SODIUM. [Concomitant]
     Active Substance: DOCUSATE SODIUM
     Route: 048
     Dates: start: 20151128, end: 20151130
  21. PANTOPRAZOLE [Concomitant]
     Active Substance: PANTOPRAZOLE
     Route: 042
     Dates: start: 20151126, end: 20151128
  22. LASIX [Concomitant]
     Active Substance: FUROSEMIDE
     Route: 042
     Dates: start: 20151129
  23. MAGIC MOUTHWASH - LIDOCAINE, DIPHENHYDRAMINE, MYLANTA [Concomitant]
     Route: 048
  24. NORMAL SALINE [Concomitant]
     Active Substance: SODIUM CHLORIDE
     Dosage: 75 ML/HOUR CONTINUOUS
     Route: 065
     Dates: start: 20151125, end: 20151128
  25. IBUPROFEN. [Concomitant]
     Active Substance: IBUPROFEN
     Route: 065
     Dates: start: 2003
  26. DIPHENHYDRAMINE. [Concomitant]
     Active Substance: DIPHENHYDRAMINE
     Route: 065
     Dates: start: 20151125
  27. PROCHLORPERAZINE. [Concomitant]
     Active Substance: PROCHLORPERAZINE
     Route: 042
     Dates: start: 20151126, end: 20151128
  28. MEROPENEM. [Concomitant]
     Active Substance: MEROPENEM
     Route: 042
     Dates: start: 20151127, end: 20151130
  29. DUONEB [Concomitant]
     Active Substance: ALBUTEROL SULFATE\IPRATROPIUM BROMIDE
     Dosage: 2.5/0.2 MG/3ML
     Route: 065
     Dates: start: 20151128, end: 20151130
  30. BACTRIM [Concomitant]
     Active Substance: SULFAMETHOXAZOLE\TRIMETHOPRIM
     Dosage: 23/DEC/2015
     Route: 048
     Dates: start: 20151223
  31. BACTRIM [Concomitant]
     Active Substance: SULFAMETHOXAZOLE\TRIMETHOPRIM
     Dosage: 0.8/0.16 G
     Route: 048
     Dates: start: 20151130, end: 20151201
  32. NORMAL SALINE [Concomitant]
     Active Substance: SODIUM CHLORIDE
     Route: 042
     Dates: start: 20151125
  33. IBUPROFEN. [Concomitant]
     Active Substance: IBUPROFEN
     Route: 048
     Dates: start: 20151126
  34. ACETAMINOPHEN X-STRENGTH [Concomitant]
     Route: 048
     Dates: start: 20151125
  35. ACETAMINOPHEN X-STRENGTH [Concomitant]
     Route: 048
     Dates: start: 20151126, end: 20151127
  36. ACETAMINOPHEN X-STRENGTH [Concomitant]
     Route: 054
     Dates: start: 20151127
  37. POTASSIUM CHLORIDE. [Concomitant]
     Active Substance: POTASSIUM CHLORIDE
     Route: 048
     Dates: start: 20151127
  38. PANTOPRAZOLE [Concomitant]
     Active Substance: PANTOPRAZOLE
     Route: 042
     Dates: start: 20151129
  39. PANTOPRAZOLE [Concomitant]
     Active Substance: PANTOPRAZOLE
     Route: 048
     Dates: start: 20151201

REACTIONS (1)
  - Influenza like illness [Recovered/Resolved]

NARRATIVE: CASE EVENT DATE: 20151120
